FAERS Safety Report 9352998 (Version 3)
Quarter: 2013Q4

REPORT INFORMATION
  Report Type: Spontaneous
  Country: US (occurrence: US)
  Receive Date: 20130618
  Receipt Date: 20131122
  Transmission Date: 20140711
  Serious: No
  Sender: FDA-Public Use
  Company Number: US-009507513-1306USA000203

PATIENT
  Age: 47 Year
  Sex: Female

DRUGS (3)
  1. REBETOL [Suspect]
     Indication: CHRONIC HEPATITIS C
     Dosage: 800 MG IN DIVIDED DOSES DAILY
     Route: 048
     Dates: start: 20130418
  2. VICTRELIS [Suspect]
     Indication: CHRONIC HEPATITIS C
     Dosage: UNK
     Route: 048
     Dates: start: 201305
  3. PEGASYS [Suspect]
     Indication: CHRONIC HEPATITIS C
     Dosage: 180 MCG WEEKLY (PROCLICK)
     Route: 058
     Dates: start: 20130418

REACTIONS (9)
  - Urine odour abnormal [Unknown]
  - Feeling hot [Unknown]
  - Paraesthesia [Unknown]
  - Hyperhidrosis [Unknown]
  - Insomnia [Unknown]
  - Hot flush [Unknown]
  - Night sweats [Unknown]
  - Fatigue [Unknown]
  - Anaemia [Unknown]
